FAERS Safety Report 12240949 (Version 3)
Quarter: 2016Q2

REPORT INFORMATION
  Report Type: Report from Study
  Country: FR (occurrence: FR)
  Receive Date: 20160406
  Receipt Date: 20160509
  Transmission Date: 20160815
  Serious: Yes (Hospitalization)
  Sender: FDA-Public Use
  Company Number: FR-ROCHE-1736479

PATIENT
  Age: 74 Year
  Sex: Female
  Weight: 58.7 kg

DRUGS (27)
  1. ERYTHROCYTES [Concomitant]
     Active Substance: HUMAN RED BLOOD CELL
     Indication: ANAEMIA
     Route: 065
     Dates: start: 20160329, end: 20160329
  2. INNOHEP [Concomitant]
     Active Substance: TINZAPARIN SODIUM
     Indication: THROMBOSIS
     Route: 065
     Dates: start: 20160401
  3. RITUXIMAB [Suspect]
     Active Substance: RITUXIMAB
     Indication: NON-HODGKIN^S LYMPHOMA
     Dosage: MOST RECENT DOSE OF RITUXIMAB PRIOR TO AE ONSET WAS ON 29/MAR/2016 AT 20:00
     Route: 042
     Dates: start: 20160307
  4. PRIMPERAN [Concomitant]
     Active Substance: METOCLOPRAMIDE HYDROCHLORIDE
     Route: 065
     Dates: start: 20160311, end: 20160311
  5. VINCRISTINE [Suspect]
     Active Substance: VINCRISTINE
     Indication: NON-HODGKIN^S LYMPHOMA
     Dosage: MOST RECENT DOSE OF VINCRISTINE PRIOR TO AE ONSET WAS ON 29/MAR/2016 AT 23:00
     Route: 042
     Dates: start: 20160308
  6. PANTOPRAZOLE [Concomitant]
     Active Substance: PANTOPRAZOLE SODIUM
     Indication: OESOPHAGITIS
     Route: 065
     Dates: start: 20160302
  7. POLARAMINE [Concomitant]
     Active Substance: DEXCHLORPHENIRAMINE MALEATE
     Route: 065
     Dates: start: 20160307, end: 20160307
  8. POLARAMINE [Concomitant]
     Active Substance: DEXCHLORPHENIRAMINE MALEATE
     Indication: PREMEDICATION
     Route: 065
     Dates: start: 20160329, end: 20160329
  9. FASTURTEC [Concomitant]
     Active Substance: RASBURICASE
     Indication: TUMOUR LYSIS SYNDROME
     Route: 065
     Dates: start: 20160307, end: 20160307
  10. PARACETAMOL [Concomitant]
     Active Substance: ACETAMINOPHEN
     Route: 065
     Dates: start: 20160329, end: 20160329
  11. ZOPHREN [Concomitant]
     Active Substance: ONDANSETRON
     Indication: NAUSEA
     Route: 065
     Dates: start: 20160309, end: 20160313
  12. PREDNISONE. [Suspect]
     Active Substance: PREDNISONE
     Indication: NON-HODGKIN^S LYMPHOMA
     Dosage: MOST RECENT DOSE OF PREDNISONE PRIOR TO AE ONSET WAS ON 01/APR/2016.
     Route: 048
     Dates: start: 20160307
  13. RENITEC [Concomitant]
     Active Substance: ENALAPRIL MALEATE
     Indication: HYPERTENSION
  14. HEXTRIL [Concomitant]
     Indication: ORAL INFECTION
     Route: 065
     Dates: start: 20160302
  15. ZYLORIC [Concomitant]
     Active Substance: ALLOPURINOL
     Indication: TUMOUR LYSIS SYNDROME
     Route: 065
     Dates: start: 20160303
  16. GDC-0199 (BCL-2 SELECTIVE INHIBITOR) [Suspect]
     Active Substance: VENETOCLAX
     Indication: NON-HODGKIN^S LYMPHOMA
     Dosage: MOST RECENT DOSE OF GDC-0199 PRIOR TO AE ONSET WAS ON 30/MAR/2016
     Route: 048
     Dates: start: 20160310
  17. CYCLOPHOSPHAMIDE. [Suspect]
     Active Substance: CYCLOPHOSPHAMIDE
     Indication: NON-HODGKIN^S LYMPHOMA
     Dosage: MOST RECENT DOSE OF CYCLOPHOSPHAMIDE PRIOR TO AE ONSET WAS ON 29/MAR/2016 AT 22:00
     Route: 042
     Dates: start: 20160308
  18. DOXORUBICIN [Suspect]
     Active Substance: DOXORUBICIN
     Indication: NON-HODGKIN^S LYMPHOMA
     Dosage: MOST RECENT DOSE OF DOXORUBICIN PRIOR TO AE ONSET WAS ON 29/MAR/2016 AT 21:45
     Route: 042
     Dates: start: 20160308
  19. SODIUM BICARBONATE. [Concomitant]
     Active Substance: SODIUM BICARBONATE
     Indication: ORAL INFECTION
     Route: 065
     Dates: start: 20160302
  20. PARACETAMOL [Concomitant]
     Active Substance: ACETAMINOPHEN
     Indication: PREMEDICATION
     Route: 065
     Dates: start: 20160307, end: 20160307
  21. ERYTHROCYTES [Concomitant]
     Active Substance: HUMAN RED BLOOD CELL
     Indication: INFECTION
     Route: 065
     Dates: start: 20160331, end: 20160401
  22. LOVENOX [Concomitant]
     Active Substance: ENOXAPARIN SODIUM
     Indication: PULMONARY EMBOLISM
     Route: 065
     Dates: start: 20160226, end: 20160314
  23. PRIMPERAN [Concomitant]
     Active Substance: METOCLOPRAMIDE HYDROCHLORIDE
     Indication: NAUSEA
     Route: 065
     Dates: start: 20160303, end: 20160304
  24. AERIUS [Concomitant]
     Active Substance: DESLORATADINE
     Route: 065
     Dates: start: 20160304, end: 20160304
  25. ERYTHROCYTES [Concomitant]
     Active Substance: HUMAN RED BLOOD CELL
     Route: 065
     Dates: start: 20160304, end: 20160304
  26. EDUCTYL [Concomitant]
     Active Substance: POTASSIUM BITARTRATE\SODIUM BICARBONATE
     Indication: CONSTIPATION
     Route: 065
     Dates: start: 20160401
  27. GRANOCYTE [Concomitant]
     Active Substance: LENOGRASTIM
     Indication: NEUTROPENIA
     Route: 065
     Dates: start: 20160404

REACTIONS (1)
  - Gastric ulcer [Not Recovered/Not Resolved]

NARRATIVE: CASE EVENT DATE: 20160401
